FAERS Safety Report 21459750 (Version 3)
Quarter: 2022Q4

REPORT INFORMATION
  Report Type: Spontaneous
  Country: US (occurrence: US)
  Receive Date: 20221014
  Receipt Date: 20221213
  Transmission Date: 20230113
  Serious: Yes (Hospitalization)
  Sender: FDA-Public Use
  Company Number: US-BIOMARINAP-US-2022-146201

PATIENT

DRUGS (1)
  1. VIMIZIM [Suspect]
     Active Substance: ELOSULFASE ALFA
     Indication: Mucopolysaccharidosis IV
     Dosage: 110 MILLIGRAM
     Route: 042
     Dates: start: 201807

REACTIONS (3)
  - Peripheral nerve operation [Unknown]
  - Pelvic operation [Unknown]
  - Hip surgery [Unknown]

NARRATIVE: CASE EVENT DATE: 20221006
